FAERS Safety Report 22655659 (Version 3)
Quarter: 2025Q1

REPORT INFORMATION
  Report Type: Spontaneous
  Country: US (occurrence: US)
  Receive Date: 20230629
  Receipt Date: 20250203
  Transmission Date: 20250408
  Serious: Yes (Hospitalization)
  Sender: PFIZER
  Company Number: US-PFIZER INC-PV202300111073

PATIENT
  Age: 60 Year
  Sex: Female
  Weight: 57.6 kg

DRUGS (9)
  1. IBRANCE [Suspect]
     Active Substance: PALBOCICLIB
     Indication: Breast cancer metastatic
     Dates: start: 20221114, end: 202212
  2. IBRANCE [Suspect]
     Active Substance: PALBOCICLIB
     Dates: start: 20230130
  3. XGEVA [Suspect]
     Active Substance: DENOSUMAB
     Indication: Metastases to bone
     Route: 058
     Dates: start: 20230410
  4. NEUPOGEN [Suspect]
     Active Substance: FILGRASTIM
     Dates: start: 2013
  5. FASLODEX [Concomitant]
     Active Substance: FULVESTRANT
     Dates: start: 20221102
  6. ZARXIO [Concomitant]
     Active Substance: FILGRASTIM-SNDZ
     Dates: start: 20221130
  7. ADRIAMYCIN [Concomitant]
     Active Substance: DOXORUBICIN HYDROCHLORIDE
  8. TAXOTERE [Concomitant]
     Active Substance: DOCETAXEL
  9. TAXOL [Concomitant]
     Active Substance: PACLITAXEL

REACTIONS (14)
  - White blood cell count increased [Unknown]
  - Pyrexia [Unknown]
  - Feeling abnormal [Unknown]
  - Tooth extraction [Unknown]
  - Haemoglobin decreased [Unknown]
  - Blood sodium decreased [Unknown]
  - Weight decreased [Not Recovered/Not Resolved]
  - Blood potassium decreased [Unknown]
  - Decreased appetite [Unknown]
  - Full blood count decreased [Unknown]
  - Neutrophil count decreased [Unknown]
  - Tumour marker abnormal [Recovering/Resolving]
  - Laboratory test abnormal [Recovered/Resolved]
  - Platelet count decreased [Unknown]

NARRATIVE: CASE EVENT DATE: 20230101
